FAERS Safety Report 24133135 (Version 1)
Quarter: 2024Q3

REPORT INFORMATION
  Report Type: Spontaneous
  Country: BR (occurrence: BR)
  Receive Date: 20240724
  Receipt Date: 20240724
  Transmission Date: 20241017
  Serious: Yes (Death, Other)
  Sender: BRISTOL MYERS SQUIBB
  Company Number: BR-BRISTOL-MYERS SQUIBB COMPANY-2024-117597

PATIENT
  Age: 20 Year
  Sex: Female

DRUGS (7)
  1. NIVOLUMAB [Suspect]
     Active Substance: NIVOLUMAB
     Indication: Renal cell carcinoma
     Dates: start: 202303
  2. CABOMETYX [Suspect]
     Active Substance: CABOZANTINIB S-MALATE
     Indication: Renal cell carcinoma
     Dosage: 40 MG, (EVERY TWO WEEKS, WITH A WEEK OF PAUSE)
     Dates: start: 202303
  3. CABOMETYX [Suspect]
     Active Substance: CABOZANTINIB S-MALATE
     Dates: start: 202406
  4. LENVATINIB [Concomitant]
     Active Substance: LENVATINIB
     Indication: Product used for unknown indication
  5. EVEROLIMUS [Concomitant]
     Active Substance: EVEROLIMUS
     Indication: Product used for unknown indication
  6. BELZUTIFAN [Concomitant]
     Active Substance: BELZUTIFAN
     Indication: Product used for unknown indication
  7. IPILIMUMAB [Concomitant]
     Active Substance: IPILIMUMAB
     Indication: Product used for unknown indication

REACTIONS (1)
  - Death [Fatal]

NARRATIVE: CASE EVENT DATE: 20240701
